FAERS Safety Report 7519410-9 (Version None)
Quarter: 2011Q2

REPORT INFORMATION
  Report Type: 
  Country: None (occurrence: None)
  Receive Date: 20110602
  Receipt Date: 20110524
  Transmission Date: 20111010
  Serious: Yes (Other)
  Sender: FDA-Public Use
  Company Number: US-ASTRAZENECA-2011SE32012

PATIENT
  Sex: Female

DRUGS (2)
  1. INDERAL [Suspect]
     Indication: MIGRAINE
     Route: 065
  2. CRESTOR [Suspect]
     Indication: HYPERCHOLESTEROLAEMIA
     Route: 048
     Dates: start: 20110101, end: 20110101

REACTIONS (3)
  - RENAL FAILURE ACUTE [None]
  - PAIN [None]
  - CREATININE RENAL CLEARANCE DECREASED [None]
